FAERS Safety Report 19363195 (Version 1)
Quarter: 2021Q2

REPORT INFORMATION
  Report Type: Spontaneous
  Country: US (occurrence: US)
  Receive Date: 20210602
  Receipt Date: 20210602
  Transmission Date: 20210717
  Serious: Yes (Death, Hospitalization)
  Sender: FDA-Public Use
  Company Number: US-MYLANLABS-2021M1032203

PATIENT
  Age: 30 Year
  Sex: Female

DRUGS (1)
  1. VERAPAMIL [Suspect]
     Active Substance: VERAPAMIL HYDROCHLORIDE
     Indication: PRODUCT USED FOR UNKNOWN INDICATION
     Dosage: 3.6 GRAM
     Route: 048

REACTIONS (6)
  - Distributive shock [Fatal]
  - Toxicity to various agents [Fatal]
  - Cardiogenic shock [Fatal]
  - Overdose [Fatal]
  - Atrioventricular block [Fatal]
  - Metabolic acidosis [Fatal]
